FAERS Safety Report 7593585-8 (Version None)
Quarter: 2011Q3

REPORT INFORMATION
  Report Type: 
  Country: None (occurrence: None)
  Receive Date: 20110706
  Receipt Date: 20110621
  Transmission Date: 20111222
  Serious: Yes (Other)
  Sender: FDA-Public Use
  Company Number: CN-GENZYME-CAMP-1001594

PATIENT

DRUGS (9)
  1. CAMPATH [Suspect]
     Indication: RENAL TRANSPLANT
     Dosage: 15 MG, ONCE
     Route: 042
  2. CAMPATH [Suspect]
     Dosage: 15 MG, ONCE ON DAY +1
     Route: 042
  3. METHYLPREDNISOLONE [Concomitant]
     Dosage: 500 MG, UNK
     Route: 042
  4. FK 506 [Concomitant]
     Indication: IMMUNOSUPPRESSANT DRUG THERAPY
     Dosage: 0.1 MG/KG, UNK, ON DAY +2
     Route: 065
  5. ACETAMINOPHEN [Concomitant]
     Indication: PREMEDICATION
     Dosage: UNK
     Route: 065
  6. PREDNISONE [Concomitant]
     Indication: IMMUNOSUPPRESSANT DRUG THERAPY
     Dosage: UNK
     Route: 065
  7. MYCOPHENOLATE MEFETIL [Concomitant]
     Indication: IMMUNOSUPPRESSANT DRUG THERAPY
     Dosage: 0.5-1 G BID
     Route: 065
  8. DIPHENHYDRAMINE HCL [Concomitant]
     Indication: PREMEDICATION
     Dosage: UNK
     Route: 065
  9. METHYLPREDNISOLONE [Concomitant]
     Indication: PREMEDICATION
     Dosage: 40 MG, UNK
     Route: 042

REACTIONS (3)
  - KIDNEY TRANSPLANT REJECTION [None]
  - GLOMERULONEPHRITIS MEMBRANOUS [None]
  - GRAFT LOSS [None]
